FAERS Safety Report 9640291 (Version 1)
Quarter: 2013Q4

REPORT INFORMATION
  Report Type: Spontaneous
  Country: US (occurrence: None)
  Receive Date: 20131022
  Receipt Date: 20131022
  Transmission Date: 20140711
  Serious: No
  Sender: FDA-Public Use
  Company Number: None

PATIENT
  Age: 84 Year
  Sex: Male
  Weight: 81.65 kg

DRUGS (8)
  1. LEVOFLOXACIN [Suspect]
     Indication: CHOLELITHOTOMY
     Dosage: 1 DAILY, BEDTIME
     Route: 048
     Dates: start: 20130530, end: 20130601
  2. ULORIC 80 MG [Concomitant]
  3. PREVACID 15 MG (NOT SPECIFIED) [Concomitant]
  4. DORIMIDE [Concomitant]
  5. TRAVAN [Concomitant]
  6. B-6 [Concomitant]
  7. B12 [Concomitant]
  8. OSCAL CENTRUM SILVER [Concomitant]

REACTIONS (3)
  - Tremor [None]
  - Product quality issue [None]
  - Thinking abnormal [None]
